FAERS Safety Report 23013940 (Version 1)
Quarter: 2023Q4

REPORT INFORMATION
  Report Type: Spontaneous
  Country: US (occurrence: US)
  Receive Date: 20231001
  Receipt Date: 20231001
  Transmission Date: 20240110
  Serious: No
  Sender: FDA-Public Use
  Company Number: US-drreddys-SPO/USA/23/0175360

PATIENT
  Age: 20 Year

DRUGS (1)
  1. ZENATANE [Suspect]
     Active Substance: ISOTRETINOIN
     Indication: Product used for unknown indication
     Dosage: RMA ISSUE DATE: 06 MARCH 2023 11:03:22 AM, 10 MAY 2023 10:21:16 AM, 12 JUNE 2023 11:48:28 AM, 14 JUL

REACTIONS (1)
  - Adverse drug reaction [Unknown]
